FAERS Safety Report 10305069 (Version 1)
Quarter: 2014Q3

REPORT INFORMATION
  Report Type: Spontaneous
  Country: US (occurrence: None)
  Receive Date: 20140711
  Receipt Date: 20140711
  Transmission Date: 20150326
  Serious: Yes (Death, Hospitalization)
  Sender: FDA-Public Use
  Company Number: None

PATIENT
  Age: 17 Year
  Sex: Male
  Weight: 51.26 kg

DRUGS (1)
  1. MINOCYCLINE [Suspect]
     Active Substance: MINOCYCLINE\MINOCYCLINE HYDROCHLORIDE
     Indication: ACNE
     Dosage: 2 PILLS TWICE DAILY BY MOUTH
     Route: 048
     Dates: start: 20131204, end: 20131221

REACTIONS (7)
  - Hepatotoxicity [None]
  - Abdominal discomfort [None]
  - Feeling abnormal [None]
  - Chills [None]
  - Fatigue [None]
  - Vomiting [None]
  - Pyrexia [None]

NARRATIVE: CASE EVENT DATE: 20131219
